FAERS Safety Report 7986638-3 (Version None)
Quarter: 2011Q4

REPORT INFORMATION
  Report Type: 
  Country: None (occurrence: None)
  Receive Date: 20111216
  Receipt Date: 20110210
  Transmission Date: 20120403
  Serious: No
  Sender: FDA-Public Use
  Company Number: US-BRISTOL-MYERS SQUIBB COMPANY-15543630

PATIENT
  Age: 10 Year
  Sex: Male
  Weight: 54 kg

DRUGS (1)
  1. ABILIFY [Suspect]
     Dosage: DOSE INCREASED

REACTIONS (3)
  - LETHARGY [None]
  - FIGHT IN SCHOOL [None]
  - FEELING ABNORMAL [None]
